FAERS Safety Report 13637062 (Version 5)
Quarter: 2017Q3

REPORT INFORMATION
  Report Type: Spontaneous
  Country: US (occurrence: US)
  Receive Date: 20170609
  Receipt Date: 20170907
  Transmission Date: 20171127
  Serious: No
  Sender: FDA-Public Use
  Company Number: US-009507513-1706USA000326

PATIENT
  Age: 27 Year
  Sex: Female
  Weight: 45.35 kg

DRUGS (1)
  1. NEXPLANON [Suspect]
     Active Substance: ETONOGESTREL
     Indication: CONTRACEPTION
     Dosage: 3 YEAR IMPLANT
     Route: 058
     Dates: start: 20140223, end: 20140707

REACTIONS (13)
  - Hypoaesthesia [Unknown]
  - Nervousness [Unknown]
  - Paraesthesia [Unknown]
  - Discomfort [Recovered/Resolved]
  - Insomnia [Unknown]
  - Anxiety [Unknown]
  - Complication of device removal [Recovered/Resolved]
  - Migration of implanted drug [Recovered/Resolved]
  - Breast tenderness [Unknown]
  - Pain [Not Recovered/Not Resolved]
  - Depression [Unknown]
  - Device difficult to use [Recovered/Resolved]
  - Limb discomfort [Unknown]

NARRATIVE: CASE EVENT DATE: 201612
